FAERS Safety Report 5308887-5 (Version None)
Quarter: 2007Q1

REPORT INFORMATION
  Report Type: 
  Country: None (occurrence: None)
  Receive Date: 20070201
  Receipt Date: 20061227
  Transmission Date: 20070707
  Serious: No
  Sender: FDA-Public Use
  Company Number: 2006PV027478

PATIENT
  Age: 38 Year
  Sex: Male
  Weight: 92.5338 kg

DRUGS (8)
  1. BYETTA [Suspect]
     Indication: DIABETES MELLITUS NON-INSULIN-DEPENDENT
     Dosage: SEE IMAGE
     Route: 058
     Dates: start: 20060801, end: 20060901
  2. BYETTA [Suspect]
     Indication: DIABETES MELLITUS NON-INSULIN-DEPENDENT
     Dosage: SEE IMAGE
     Route: 058
     Dates: start: 20060901
  3. METFORMIN HCL [Concomitant]
  4. PROZAC [Concomitant]
  5. LIPITOR [Concomitant]
  6. NORVASC [Concomitant]
  7. BENICAR [Concomitant]
  8. HERBAL POWDER-GREEN VIBRANCE [Concomitant]

REACTIONS (2)
  - BLOOD POTASSIUM INCREASED [None]
  - WEIGHT DECREASED [None]
